FAERS Safety Report 7671443-8 (Version None)
Quarter: 2011Q3

REPORT INFORMATION
  Report Type: 
  Country: None (occurrence: None)
  Receive Date: 20110809
  Receipt Date: 20110719
  Transmission Date: 20111222
  Serious: Yes (Life-Threatening, Hospitalization, Other)
  Sender: FDA-Public Use
  Company Number: US-BAYER-201029997NA

PATIENT
  Age: 35 Year
  Sex: Female
  Weight: 57.596 kg

DRUGS (16)
  1. ROBINUL [Concomitant]
  2. ASCORBIC ACID [Concomitant]
  3. ATROPINE [Concomitant]
     Indication: HYPOTENSION
  4. POTASSIUM CHLORIDE [Concomitant]
  5. NSAID'S [Concomitant]
  6. SODIUM BICARBONATE [Concomitant]
     Dosage: UNK
  7. PROTONIX [Concomitant]
     Dosage: 40 MG, QD
     Route: 048
     Dates: start: 20080801
  8. PONSTEL [Concomitant]
     Indication: MUSCLE SPASMS
     Dosage: UNK UNK, PRN
     Dates: start: 20080603
  9. GLYCOPYRROLATE [Concomitant]
  10. ATROPINE [Concomitant]
     Indication: BRADYCARDIA
  11. ZINC [ZINC] [Concomitant]
  12. NEXIUM [Concomitant]
     Dosage: 40 MG, BID
     Dates: start: 20080611
  13. KLONOPIN [Concomitant]
     Indication: ANXIETY
     Dosage: UNK UNK, PRN
  14. YAZ [Suspect]
     Indication: MUSCLE SPASMS
     Route: 048
     Dates: start: 20080701, end: 20080815
  15. YAZ [Suspect]
     Indication: PREMENSTRUAL SYNDROME
  16. CALCIUM [CALCIUM] [Concomitant]

REACTIONS (7)
  - CARDIAC ARREST [None]
  - DEEP VEIN THROMBOSIS [None]
  - PULMONARY EMBOLISM [None]
  - CONVULSION [None]
  - ENDOTRACHEAL INTUBATION [None]
  - MECHANICAL VENTILATION [None]
  - CARDIO-RESPIRATORY ARREST [None]
